FAERS Safety Report 21620507 (Version 2)
Quarter: 2022Q4

REPORT INFORMATION
  Report Type: Report from Study
  Country: MX (occurrence: MX)
  Receive Date: 20221121
  Receipt Date: 20221205
  Transmission Date: 20230113
  Serious: Yes (Other)
  Sender: FDA-Public Use
  Company Number: MX-002147023-NVSC2022MX260593

PATIENT
  Age: 43 Year
  Sex: Female
  Weight: 80 kg

DRUGS (11)
  1. FEMARA [Suspect]
     Active Substance: LETROZOLE
     Indication: Breast cancer metastatic
     Dosage: 1 DOSAGE FORM, QD, (2.5 MG), (36 DAYS AGO)
     Route: 048
     Dates: start: 202210, end: 202211
  2. FEMARA [Suspect]
     Active Substance: LETROZOLE
     Indication: Metastases to lung
     Dosage: 2.5 MG, QD (1, STARTED 1 WEEK AGO)
     Route: 048
  3. PALBOCICLIB [Suspect]
     Active Substance: PALBOCICLIB
     Indication: Breast cancer metastatic
     Dosage: 1 DOSAGE FORM, QD, (125 MG)
     Route: 048
     Dates: start: 202210, end: 202211
  4. PALBOCICLIB [Suspect]
     Active Substance: PALBOCICLIB
     Indication: Metastases to lung
  5. VITAMIN D [Concomitant]
     Active Substance: VITAMIN D NOS
     Indication: Bone disorder
     Dosage: 1 DOSAGE FORM, QD
     Route: 048
     Dates: start: 202202, end: 202210
  6. OMEGA 3 [Concomitant]
     Active Substance: CAPSAICIN
     Indication: Hypovitaminosis
     Dosage: 1 DOSAGE FORM, BID (EVER Y 12 HOURS)
     Route: 048
     Dates: start: 202202
  7. CALCIUM [Concomitant]
     Active Substance: CALCIUM
     Indication: Bone disorder
     Dosage: 1 DOSAGE FORM, QD
     Route: 048
     Dates: start: 202202, end: 202210
  8. TRANSFER FACTOR [Concomitant]
     Indication: Product used for unknown indication
     Dosage: 395 MG, (9 TO 12 CAPSULES OR 4 IN THE MORNING WITH THE BREAKFAST OR 6, 3 IN THE MORNING AND 3 IN THE
     Route: 048
  9. XGEVA [Concomitant]
     Active Substance: DENOSUMAB
     Indication: Bone disorder
     Dosage: 1 DOSAGE FORM, QD, (SOLUTION)
     Route: 030
     Dates: start: 20221010
  10. XGEVA [Concomitant]
     Active Substance: DENOSUMAB
     Dosage: 1 DOSAGE FORM, QMO (APPLICATION)
     Route: 030
     Dates: start: 20221010, end: 202210
  11. CALCIUM PANTOTHENATE\CYANOCOBALAMIN\NIACINAMIDE\PYRIDOXINE HYDROCHLORI [Concomitant]
     Active Substance: CALCIUM PANTOTHENATE\CYANOCOBALAMIN\NIACINAMIDE\PYRIDOXINE HYDROCHLORIDE\RIBOFLAVIN\THIAMINE MONONIT
     Indication: Hypovitaminosis
     Dosage: 1 DOSAGE FORM, QD
     Route: 065
     Dates: start: 202202

REACTIONS (14)
  - Choking [Not Recovered/Not Resolved]
  - Aptyalism [Not Recovered/Not Resolved]
  - Dry throat [Not Recovered/Not Resolved]
  - Eating disorder [Recovering/Resolving]
  - Haemoglobin decreased [Not Recovered/Not Resolved]
  - Haematocrit decreased [Not Recovered/Not Resolved]
  - Mean cell volume [Not Recovered/Not Resolved]
  - Hair disorder [Unknown]
  - Madarosis [Unknown]
  - Weight decreased [Not Recovered/Not Resolved]
  - Weight increased [Not Recovered/Not Resolved]
  - Red blood cell count decreased [Not Recovered/Not Resolved]
  - Vomiting [Recovered/Resolved]
  - White blood cell count decreased [Not Recovered/Not Resolved]

NARRATIVE: CASE EVENT DATE: 20221001
